FAERS Safety Report 21801381 (Version 2)
Quarter: 2023Q2

REPORT INFORMATION
  Report Type: Report from Study
  Country: US (occurrence: US)
  Receive Date: 20221230
  Receipt Date: 20230509
  Transmission Date: 20230722
  Serious: Yes (Other)
  Sender: FDA-Public Use
  Company Number: US-ABBVIE-4253028

PATIENT
  Age: 54 Year
  Sex: Female

DRUGS (1)
  1. HUMIRA [Suspect]
     Active Substance: ADALIMUMAB
     Indication: Psoriatic arthropathy
     Dosage: CITRATE FREE
     Route: 058

REACTIONS (4)
  - Knee operation [Recovered/Resolved]
  - Pain in extremity [Recovering/Resolving]
  - Gait disturbance [Unknown]
  - Walking aid user [Unknown]

NARRATIVE: CASE EVENT DATE: 20221206
